FAERS Safety Report 18881503 (Version 1)
Quarter: 2021Q1

REPORT INFORMATION
  Report Type: Spontaneous
  Country: US (occurrence: US)
  Receive Date: 20210212
  Receipt Date: 20210212
  Transmission Date: 20210420
  Serious: No
  Sender: FDA-Public Use
  Company Number: US-MACLEODS PHARMACEUTICALS US LTD-MAC2021030098

PATIENT
  Sex: Female
  Weight: 74.39 kg

DRUGS (1)
  1. VENLAFAXINE 75 MG EXTENDED RELEASE CAPSULES [Suspect]
     Active Substance: VENLAFAXINE HYDROCHLORIDE
     Indication: DEPRESSION
     Dosage: 2 DOSAGE FORM, QD
     Route: 048

REACTIONS (3)
  - Drug ineffective [Unknown]
  - Paraesthesia [Recovered/Resolved]
  - Product substitution issue [Unknown]
